FAERS Safety Report 25725882 (Version 1)
Quarter: 2025Q3

REPORT INFORMATION
  Report Type: Spontaneous
  Country: EU (occurrence: EU)
  Receive Date: 20250826
  Receipt Date: 20250826
  Transmission Date: 20251021
  Serious: Yes (Congenital Anomaly)
  Sender: RANBAXY
  Company Number: EU-SUN PHARMACEUTICAL INDUSTRIES LTD-2025RR-524242

PATIENT
  Sex: Female

DRUGS (12)
  1. IVACAFTOR [Suspect]
     Active Substance: IVACAFTOR
     Indication: Cystic fibrosis
     Route: 064
     Dates: start: 20230113, end: 20230324
  2. PANTOPRAZOLE [Suspect]
     Active Substance: PANTOPRAZOLE
     Indication: Cystic fibrosis
     Dosage: 1 DOSAGE FORM, DAILY
     Route: 064
     Dates: end: 20230324
  3. ELEXACAFTOR [Suspect]
     Active Substance: ELEXACAFTOR
     Indication: Cystic fibrosis
     Route: 064
     Dates: start: 20230113, end: 20230324
  4. TEZACAFTOR [Suspect]
     Active Substance: TEZACAFTOR
     Indication: Cystic fibrosis
     Route: 064
     Dates: start: 20230113, end: 20230324
  5. COLISTIMETHATE SODIUM [Suspect]
     Active Substance: COLISTIMETHATE SODIUM
     Indication: Pneumonia pseudomonal
     Dosage: 2 MU 2 TIMES/DAY
     Route: 064
     Dates: end: 20230324
  6. TOBI [Suspect]
     Active Substance: TOBRAMYCIN
     Indication: Pneumonia pseudomonal
     Dosage: 300 MG 2 TIMES A DAY
     Route: 064
     Dates: end: 20230324
  7. SERETIDE [Suspect]
     Active Substance: FLUTICASONE PROPIONATE\SALMETEROL XINAFOATE
     Indication: Cystic fibrosis
     Dosage: 250 MG 4 TIMES A DAY THEN 2 TIMES A DAY
     Route: 064
     Dates: end: 20230324
  8. ALBUTEROL [Suspect]
     Active Substance: ALBUTEROL
     Indication: Cystic fibrosis
     Route: 064
     Dates: end: 20230324
  9. LEVOTHYROXINE [Suspect]
     Active Substance: LEVOTHYROXINE
     Indication: Hypothyroidism
     Dosage: 75 MCG, DAILY
     Route: 064
     Dates: end: 20230324
  10. FERROUS FUMARATE [Suspect]
     Active Substance: FERROUS FUMARATE
     Indication: Anaemia
     Dosage: 1 DOSAGE FORM, DAILY
     Route: 064
     Dates: end: 20230324
  11. CREON [Suspect]
     Active Substance: PANCRELIPASE AMYLASE\PANCRELIPASE LIPASE\PANCRELIPASE PROTEASE
     Indication: Cystic fibrosis
     Dosage: 25000 MILLION INTERNATIONAL UNIT, DAILY
     Route: 064
     Dates: end: 20230324
  12. POLYETHYLENE GLYCOLS [Suspect]
     Active Substance: POLYETHYLENE GLYCOLS
     Indication: Constipation
     Dosage: 3 DOSAGE FORM, 1/WEEK
     Route: 065
     Dates: end: 20230324

REACTIONS (2)
  - Pelvic kidney [Recovered/Resolved with Sequelae]
  - Maternal exposure during pregnancy [Recovered/Resolved]

NARRATIVE: CASE EVENT DATE: 20230324
